FAERS Safety Report 5012423-0 (Version None)
Quarter: 2006Q2

REPORT INFORMATION
  Report Type: 
  Country: None (occurrence: None)
  Receive Date: 20060414
  Receipt Date: 20060118
  Transmission Date: 20061013
  Serious: No
  Sender: FDA-Public Use
  Company Number: 2006SP000314

PATIENT
  Sex: Female
  Weight: 69.4003 kg

DRUGS (3)
  1. LUNESTA [Suspect]
     Indication: INSOMNIA
     Dosage: 2 MG;PRN;ORAL
     Route: 048
     Dates: start: 20060116
  2. VITAMIN D [Concomitant]
  3. THYROID TAB [Concomitant]

REACTIONS (1)
  - FLATULENCE [None]
